FAERS Safety Report 8980953 (Version 5)
Quarter: 2013Q4

REPORT INFORMATION
  Report Type: Spontaneous
  Country: US (occurrence: US)
  Receive Date: 20121221
  Receipt Date: 20131210
  Transmission Date: 20140711
  Serious: Yes (Hospitalization, Other)
  Sender: FDA-Public Use
  Company Number: US-009507513-1212USA008175

PATIENT
  Sex: Female
  Weight: 82.99 kg

DRUGS (4)
  1. FOSAMAX [Suspect]
     Indication: OSTEOPOROSIS
     Dosage: 10 MG, UNK
     Route: 048
     Dates: start: 20000509, end: 201010
  2. FOSAMAX [Suspect]
     Dosage: 70 MG, UNK
     Route: 048
     Dates: start: 20001228
  3. ACTONEL [Concomitant]
     Indication: OSTEOPOROSIS
     Dosage: 5 MG, UNK
     Route: 048
     Dates: start: 200005, end: 201010
  4. ACTONEL [Concomitant]
     Dosage: 35 MG, UNK
     Dates: start: 200005, end: 201010

REACTIONS (26)
  - Intramedullary rod insertion [Unknown]
  - Intramedullary rod insertion [Unknown]
  - Breast cancer stage I [Unknown]
  - Mastectomy [Unknown]
  - Transfusion [Unknown]
  - Femur fracture [Unknown]
  - Femur fracture [Unknown]
  - Foot fracture [Recovered/Resolved]
  - Adverse event [Unknown]
  - Hypertension [Unknown]
  - Blood cholesterol increased [Unknown]
  - Asthma [Unknown]
  - Post procedural infection [Unknown]
  - Osteoarthritis [Unknown]
  - Osteopenia [Unknown]
  - Fall [Unknown]
  - Coronary artery disease [Unknown]
  - Sleep apnoea syndrome [Unknown]
  - Atrioventricular block first degree [Unknown]
  - Chest X-ray abnormal [Unknown]
  - Escherichia urinary tract infection [Unknown]
  - Atelectasis [Unknown]
  - Road traffic accident [Unknown]
  - Pyrexia [Unknown]
  - Pain in extremity [Unknown]
  - Pain in extremity [Unknown]
